FAERS Safety Report 13103930 (Version 1)
Quarter: 2017Q1

REPORT INFORMATION
  Report Type: Spontaneous
  Country: US (occurrence: US)
  Receive Date: 20170111
  Receipt Date: 20170111
  Transmission Date: 20170428
  Serious: Yes (Hospitalization, Other)
  Sender: FDA-Public Use
  Company Number: US-ZYDUS-013126

PATIENT
  Age: 56 Year
  Sex: Male

DRUGS (1)
  1. RISPERIDONE. [Suspect]
     Active Substance: RISPERIDONE
     Indication: SCHIZOPHRENIA
     Route: 065

REACTIONS (9)
  - Seizure [Recovered/Resolved]
  - Confusional state [Recovered/Resolved]
  - Unresponsive to stimuli [Recovered/Resolved]
  - Mutism [Recovered/Resolved]
  - Tardive dyskinesia [Recovered/Resolved]
  - Psychotic disorder [Recovered/Resolved]
  - Staring [Recovered/Resolved]
  - Abnormal behaviour [Recovered/Resolved]
  - Feeling abnormal [Recovered/Resolved]
